FAERS Safety Report 10777813 (Version 1)
Quarter: 2015Q1

REPORT INFORMATION
  Report Type: Spontaneous
  Country: US (occurrence: US)
  Receive Date: 20150209
  Receipt Date: 20150209
  Transmission Date: 20150721
  Serious: No
  Sender: FDA-Public Use
  Company Number: US-GLAXOSMITHKLINE-US2015013397

PATIENT
  Age: 17 Year
  Sex: Male

DRUGS (1)
  1. WELLBUTRIN [Suspect]
     Active Substance: BUPROPION HYDROCHLORIDE
     Indication: DEPRESSION
     Route: 048
     Dates: start: 201209, end: 201209

REACTIONS (6)
  - Treatment noncompliance [Unknown]
  - Performance status decreased [Recovered/Resolved]
  - Bedridden [Recovered/Resolved]
  - Intentional underdose [Unknown]
  - Hypersensitivity [Recovered/Resolved]
  - Hallucination [Recovered/Resolved]

NARRATIVE: CASE EVENT DATE: 201209
